FAERS Safety Report 24452892 (Version 1)
Quarter: 2024Q4

REPORT INFORMATION
  Report Type: Spontaneous
  Country: US (occurrence: US)
  Receive Date: 20241017
  Receipt Date: 20241017
  Transmission Date: 20250114
  Serious: No
  Sender: SUNOVION
  Company Number: US-UROVANT SCIENCES GMBH-202405-URV-000664

PATIENT
  Sex: Female
  Weight: 76.19 kg

DRUGS (10)
  1. GEMTESA [Suspect]
     Active Substance: VIBEGRON
     Indication: Hypertonic bladder
     Dosage: 1 TAB, QD, IN THE MORNING
     Route: 065
  2. LISINOPRIL [Concomitant]
     Active Substance: LISINOPRIL
     Indication: Product used for unknown indication
     Dosage: 10 MG, QD
     Route: 048
  3. ATORVASTATIN [Concomitant]
     Active Substance: ATORVASTATIN
     Indication: Product used for unknown indication
     Dosage: 20 MG, QD
     Route: 065
  4. AGGRENOX [Concomitant]
     Active Substance: ASPIRIN\DIPYRIDAMOLE
     Indication: Product used for unknown indication
     Dosage: UNK
     Route: 065
  5. MAGNESIUM [Concomitant]
     Active Substance: MAGNESIUM
     Indication: Product used for unknown indication
     Dosage: UNK, AT NIGHT
     Route: 065
  6. ASPIRIN [Concomitant]
     Active Substance: ASPIRIN
     Indication: Coagulopathy
     Dosage: 25 MG-200 MG CAPSULE, EXTENDED RELEASE MULTIPHASE 12HR 1 CAPSULE
     Route: 048
  7. CHONDROITIN SULFATE (CHICKEN) [Concomitant]
     Active Substance: CHONDROITIN SULFATE (CHICKEN)
     Indication: Product used for unknown indication
     Dosage: 1 UNK, QD
     Route: 048
  8. DIPYRIDAMOLE [Concomitant]
     Active Substance: DIPYRIDAMOLE
     Indication: Product used for unknown indication
     Dosage: 1 UNK, QD
     Route: 048
  9. ECHINACEA                          /01323501/ [Concomitant]
     Indication: Product used for unknown indication
     Dosage: 1 UNK, QD
     Route: 048
  10. GLUCOSAMINE COMPLEX                /01555401/ [Concomitant]
     Indication: Product used for unknown indication
     Dosage: 1500 MG -400 UNIT-100 MG, 2 TAB, QD
     Route: 048

REACTIONS (1)
  - Inappropriate schedule of product administration [Unknown]
